FAERS Safety Report 6388404-1 (Version None)
Quarter: 2009Q4

REPORT INFORMATION
  Report Type: 
  Country: None (occurrence: None)
  Receive Date: 20091005
  Receipt Date: 20090930
  Transmission Date: 20100525
  Serious: Yes (Death, Life-Threatening, Hospitalization)
  Sender: FDA-Public Use
  Company Number: JP-SANOFI-SYNTHELABO-F01200900941

PATIENT
  Sex: Male
  Weight: 58 kg

DRUGS (21)
  1. MODACIN [Concomitant]
     Dosage: 1000 MG
     Route: 042
     Dates: start: 20090523, end: 20090524
  2. PENTCILLIN [Concomitant]
     Dosage: 1000 MG
     Route: 042
     Dates: start: 20090505, end: 20090524
  3. DOBUTREX [Concomitant]
     Indication: ACUTE MYOCARDIAL INFARCTION
     Dosage: 600 MG
     Route: 042
     Dates: start: 20090504
  4. CALBLOCK [Concomitant]
     Indication: ACUTE MYOCARDIAL INFARCTION
     Route: 048
     Dates: start: 20090424, end: 20090521
  5. BLOPRESS [Concomitant]
     Indication: ACUTE MYOCARDIAL INFARCTION
     Dosage: 2 MG
     Route: 048
     Dates: start: 20090423, end: 20090521
  6. ARTIST [Concomitant]
     Indication: ACUTE MYOCARDIAL INFARCTION
     Route: 048
     Dates: start: 20090423, end: 20090521
  7. SIGMART [Concomitant]
     Indication: ACUTE MYOCARDIAL INFARCTION
     Route: 048
     Dates: start: 20090423, end: 20090521
  8. ITOROL [Concomitant]
     Indication: ACUTE MYOCARDIAL INFARCTION
     Route: 065
     Dates: start: 20090422, end: 20090521
  9. PLETAL [Concomitant]
     Indication: ACUTE MYOCARDIAL INFARCTION
     Route: 048
     Dates: start: 20090422, end: 20090424
  10. PANSPORIN [Concomitant]
     Route: 042
     Dates: start: 20090422, end: 20090427
  11. HANP [Concomitant]
     Indication: ACUTE MYOCARDIAL INFARCTION
     Dosage: 2 MG
     Route: 065
     Dates: start: 20090422, end: 20090610
  12. TAKEPRON [Concomitant]
     Dosage: 30 MG
     Route: 042
     Dates: start: 20090422, end: 20090422
  13. TAKEPRON [Concomitant]
     Dosage: 30 MG
     Route: 048
     Dates: start: 20090423, end: 20090610
  14. PERSANTINE [Concomitant]
     Indication: ACUTE MYOCARDIAL INFARCTION
     Route: 048
     Dates: start: 20090424, end: 20090514
  15. HEPARIN [Suspect]
     Indication: ACUTE MYOCARDIAL INFARCTION
     Dosage: 10000 UNIT
     Route: 042
     Dates: start: 20090422, end: 20090427
  16. ASPIRIN [Suspect]
     Indication: ACUTE MYOCARDIAL INFARCTION
     Dosage: 200 MG
     Route: 048
     Dates: start: 20090422, end: 20090422
  17. ASPIRIN [Suspect]
     Dosage: 100 MG
     Route: 048
     Dates: start: 20090423
  18. CLOPIDOGREL [Suspect]
     Indication: ACUTE CORONARY SYNDROME
     Dosage: STARTING DOSE 300 MG
     Route: 048
     Dates: start: 20090422, end: 20090422
  19. CLOPIDOGREL [Suspect]
     Indication: ACUTE MYOCARDIAL INFARCTION
     Dosage: STARTING DOSE 300 MG
     Route: 048
     Dates: start: 20090422, end: 20090422
  20. CLOPIDOGREL [Suspect]
     Dosage: MAINTENANCE DOSE
     Route: 048
     Dates: start: 20090423, end: 20090514
  21. CLOPIDOGREL [Suspect]
     Dosage: MAINTENANCE DOSE
     Route: 048
     Dates: start: 20090423, end: 20090514

REACTIONS (4)
  - HAEMORRHAGE CORONARY ARTERY [None]
  - OESOPHAGEAL ULCER HAEMORRHAGE [None]
  - PNEUMONIA [None]
  - RENAL FAILURE [None]
